FAERS Safety Report 9493659 (Version 1)
Quarter: 2013Q3

REPORT INFORMATION
  Report Type: Spontaneous
  Country: US (occurrence: US)
  Receive Date: 20130902
  Receipt Date: 20130902
  Transmission Date: 20140515
  Serious: No
  Sender: FDA-Public Use
  Company Number: US-JNJFOC-20130808557

PATIENT
  Age: 61 Year
  Sex: Female

DRUGS (3)
  1. INVEGA SUSTENNA [Suspect]
     Indication: BIPOLAR DISORDER
     Route: 030
     Dates: start: 20130529
  2. INVEGA SUSTENNA [Suspect]
     Indication: BIPOLAR DISORDER
     Route: 030
     Dates: start: 20130522, end: 20130522
  3. LORAZEPAM [Concomitant]
     Indication: SLEEP DISORDER
     Route: 048

REACTIONS (1)
  - Urticaria [Not Recovered/Not Resolved]
